FAERS Safety Report 8189700 (Version 6)
Quarter: 2013Q3

REPORT INFORMATION
  Report Type: Spontaneous
  Country: AU (occurrence: US)
  Receive Date: 20111019
  Receipt Date: 20130924
  Transmission Date: 20140515
  Serious: Yes (Hospitalization)
  Sender: FDA-Public Use
  Company Number: US-JNJFOC-20111005316

PATIENT
  Age: 63 Year
  Sex: Male
  Weight: 95.26 kg

DRUGS (1)
  1. NUCYNTA [Suspect]
     Indication: PROCEDURAL PAIN
     Dosage: ONCE EVERY 6 HOURS PRN (ONLY 15O MG TABLET TAKEN)
     Route: 048
     Dates: start: 20110615

REACTIONS (8)
  - Ataxia [Recovered/Resolved]
  - Disorientation [Recovered/Resolved]
  - Dysarthria [Recovered/Resolved]
  - Akathisia [Recovered/Resolved]
  - Serotonin syndrome [Recovered/Resolved]
  - Aggression [Recovered/Resolved]
  - Speech disorder [Recovered/Resolved]
  - Abnormal behaviour [Recovered/Resolved]
